FAERS Safety Report 6860019-8 (Version None)
Quarter: 2010Q3

REPORT INFORMATION
  Report Type: 
  Country: None (occurrence: None)
  Receive Date: 20100720
  Receipt Date: 20100709
  Transmission Date: 20110219
  Serious: Yes (Other)
  Sender: FDA-Public Use
  Company Number: KR-PFIZER INC-2010086071

PATIENT
  Sex: Male

DRUGS (1)
  1. TOVIAZ [Suspect]
     Indication: URINARY INCONTINENCE
     Dosage: 4 MG, UNK
     Route: 048
     Dates: start: 20100101, end: 20100101

REACTIONS (5)
  - ABDOMINAL DISTENSION [None]
  - DISCOMFORT [None]
  - DYSPEPSIA [None]
  - FLATULENCE [None]
  - VISUAL ACUITY REDUCED [None]
